FAERS Safety Report 8510989-7 (Version None)
Quarter: 2012Q3

REPORT INFORMATION
  Report Type: 
  Country: None (occurrence: None)
  Receive Date: 20120703
  Receipt Date: 20120621
  Transmission Date: 20120928
  Serious: Yes (Hospitalization, Other)
  Sender: FDA-Public Use
  Company Number: AUR-APL-2012-02640

PATIENT
  Age: 24 Year
  Sex: Female

DRUGS (1)
  1. AMLODIPINE [Suspect]
     Indication: PRODUCT USED FOR UNKNOWN INDICATION
     Dosage: (56 DOSAGE FORMS), ORAL
     Route: 048

REACTIONS (28)
  - PO2 DECREASED [None]
  - PCO2 DECREASED [None]
  - METABOLIC ACIDOSIS [None]
  - RESPIRATORY RATE INCREASED [None]
  - BLOOD CALCIUM DECREASED [None]
  - SOMNOLENCE [None]
  - HYPOTENSION [None]
  - INTENTIONAL OVERDOSE [None]
  - LUNG INFILTRATION [None]
  - NEUTROPHIL PERCENTAGE INCREASED [None]
  - BLOOD UREA INCREASED [None]
  - NAUSEA [None]
  - SUICIDE ATTEMPT [None]
  - HAEMOGLOBIN DECREASED [None]
  - LYMPHOCYTE PERCENTAGE DECREASED [None]
  - BLOOD GLUCOSE INCREASED [None]
  - NO THERAPEUTIC RESPONSE [None]
  - ANXIETY [None]
  - OXYGEN SATURATION DECREASED [None]
  - SINUS TACHYCARDIA [None]
  - TOXICITY TO VARIOUS AGENTS [None]
  - VOMITING [None]
  - ABDOMINAL PAIN [None]
  - DYSPNOEA [None]
  - RALES [None]
  - BLOOD CREATININE INCREASED [None]
  - URINE OUTPUT DECREASED [None]
  - LUNG DISORDER [None]
